FAERS Safety Report 5795677-2 (Version None)
Quarter: 2008Q2

REPORT INFORMATION
  Report Type: 
  Country: None (occurrence: None)
  Receive Date: 20080630
  Receipt Date: 20080623
  Transmission Date: 20081010
  Serious: Yes (Death)
  Sender: FDA-Public Use
  Company Number: US-BAXTER-2008BH005193

PATIENT
  Age: 68 Year
  Sex: Male
  Weight: 81 kg

DRUGS (6)
  1. HEPARIN SODIUM 5,000 UNITS IN DEXTROSE 5% [Suspect]
     Indication: ISCHAEMIC STROKE
     Route: 042
     Dates: start: 20080218, end: 20080218
  2. HEPARIN SODIUM INJECTION [Suspect]
     Indication: ISCHAEMIC STROKE
     Route: 042
     Dates: start: 20080217, end: 20080217
  3. ANTIBIOTICS [Concomitant]
     Indication: PNEUMONIA ASPIRATION
     Dosage: DOSE UNIT:UNKNOWN
     Route: 042
     Dates: start: 20080218
  4. WARFARIN SODIUM [Concomitant]
     Indication: DRUG USE FOR UNKNOWN INDICATION
     Dosage: DOSE UNIT:UNKNOWN
     Route: 065
     Dates: start: 19830101
  5. LANOXIN [Concomitant]
     Indication: DRUG USE FOR UNKNOWN INDICATION
     Dosage: DOSE UNIT:UNKNOWN
     Route: 065
  6. XANAX [Concomitant]
     Indication: DRUG USE FOR UNKNOWN INDICATION
     Dosage: DOSE UNIT:UNKNOWN
     Route: 065

REACTIONS (5)
  - ASPIRATION [None]
  - CEREBRAL HAEMORRHAGE [None]
  - RESPIRATORY DISTRESS [None]
  - RETCHING [None]
  - VOMITING [None]
